FAERS Safety Report 6248441-4 (Version None)
Quarter: 2009Q2

REPORT INFORMATION
  Report Type: 
  Country: None (occurrence: None)
  Receive Date: 20090629
  Receipt Date: 20090625
  Transmission Date: 20091009
  Serious: Yes (Death, Other)
  Sender: FDA-Public Use
  Company Number: JP-JNJFOC-20090302421

PATIENT
  Sex: Male
  Weight: 60 kg

DRUGS (22)
  1. LEUSTATIN [Suspect]
     Route: 041
  2. LEUSTATIN [Suspect]
     Route: 041
  3. LEUSTATIN [Suspect]
     Route: 041
  4. LEUSTATIN [Suspect]
     Route: 041
  5. LEUSTATIN [Suspect]
     Indication: MANTLE CELL LYMPHOMA
     Route: 041
  6. RITUXAN [Suspect]
     Route: 042
  7. RITUXAN [Suspect]
     Route: 042
  8. RITUXAN [Suspect]
     Route: 042
  9. RITUXAN [Suspect]
     Route: 042
  10. RITUXAN [Suspect]
     Route: 042
  11. RITUXAN [Suspect]
     Route: 042
  12. RITUXAN [Suspect]
     Route: 042
  13. RITUXAN [Suspect]
     Route: 042
  14. RITUXAN [Suspect]
     Indication: MANTLE CELL LYMPHOMA
     Route: 042
  15. DIGOXIN [Concomitant]
     Indication: ATRIAL FIBRILLATION
     Route: 048
  16. BUFFERIN [Concomitant]
     Indication: ATRIAL FIBRILLATION
     Route: 048
  17. ALOSITOL [Concomitant]
     Indication: HYPERURICAEMIA
     Route: 048
  18. SUNRYTHM [Concomitant]
     Indication: ATRIAL FIBRILLATION
     Route: 048
  19. NEUTROGIN [Concomitant]
     Route: 058
  20. NEUTROGIN [Concomitant]
     Route: 058
  21. NEUTROGIN [Concomitant]
     Route: 058
  22. NEUTROGIN [Concomitant]
     Route: 058

REACTIONS (8)
  - ANAEMIA [None]
  - BLOOD UREA INCREASED [None]
  - LYMPHOCYTE COUNT DECREASED [None]
  - MANTLE CELL LYMPHOMA [None]
  - PANCYTOPENIA [None]
  - PLATELET COUNT DECREASED [None]
  - PROGRESSIVE MULTIFOCAL LEUKOENCEPHALOPATHY [None]
  - WHITE BLOOD CELL COUNT DECREASED [None]
